FAERS Safety Report 12236057 (Version 1)
Quarter: 2016Q2

REPORT INFORMATION
  Report Type: Report from Study
  Country: CO (occurrence: CO)
  Receive Date: 20160404
  Receipt Date: 20160404
  Transmission Date: 20160815
  Serious: No
  Sender: FDA-Public Use
  Company Number: PHHY2016CO043304

PATIENT
  Age: 26 Year
  Sex: Female
  Weight: 73 kg

DRUGS (1)
  1. TASIGNA [Suspect]
     Active Substance: NILOTINIB
     Indication: CHRONIC MYELOID LEUKAEMIA
     Dosage: 2 DF, Q12H
     Route: 048
     Dates: start: 20160224, end: 20160228

REACTIONS (6)
  - Swelling face [Unknown]
  - Arthralgia [Unknown]
  - Gait disturbance [Unknown]
  - Migraine [Unknown]
  - Rash [Unknown]
  - Syncope [Unknown]

NARRATIVE: CASE EVENT DATE: 20160226
